FAERS Safety Report 9714298 (Version 2)
Quarter: 2013Q4

REPORT INFORMATION
  Report Type: Spontaneous
  Country: US (occurrence: US)
  Receive Date: 20131126
  Receipt Date: 20131126
  Transmission Date: 20140711
  Serious: No
  Sender: FDA-Public Use
  Company Number: US-GILEAD-2008-0019306

PATIENT
  Sex: Female
  Weight: 99.34 kg

DRUGS (17)
  1. LETAIRIS [Suspect]
     Indication: PULMONARY ARTERIAL HYPERTENSION
     Route: 048
  2. IMDUR [Concomitant]
     Route: 048
  3. RANEXA [Concomitant]
     Route: 048
  4. TOPROL XL [Concomitant]
     Route: 048
  5. FUROSEMIDE [Concomitant]
     Route: 048
  6. SPIRONOLACTONE [Concomitant]
     Route: 048
  7. SINGULAIR [Concomitant]
     Route: 048
  8. ZOCOR [Concomitant]
     Route: 048
  9. COZAAR [Concomitant]
     Route: 048
  10. PLAVIX [Concomitant]
     Route: 048
  11. HUMALOG [Concomitant]
     Route: 058
  12. LANTUS [Concomitant]
     Route: 058
  13. VICODIN [Concomitant]
     Route: 048
  14. SYMBICORT [Concomitant]
     Route: 055
  15. NEXIUM [Concomitant]
     Route: 048
  16. ASPIRIN [Concomitant]
     Route: 048
  17. POTASSIUM CHLORIDE [Concomitant]
     Route: 048

REACTIONS (2)
  - Pruritus [Recovered/Resolved]
  - Hypersensitivity [Recovered/Resolved]
